FAERS Safety Report 15624245 (Version 1)
Quarter: 2018Q4

REPORT INFORMATION
  Report Type: Spontaneous
  Country: US (occurrence: US)
  Receive Date: 20181116
  Receipt Date: 20181116
  Transmission Date: 20190205
  Serious: No
  Sender: FDA-Public Use
  Company Number: US-BAUSCH-BL-2018-029424

PATIENT
  Age: 37 Year
  Sex: Female
  Weight: 49.94 kg

DRUGS (3)
  1. DOXYCYCLINE. [Suspect]
     Active Substance: DOXYCYCLINE
     Indication: PERIORAL DERMATITIS
     Dosage: FOR OVER 1 MONTH
     Route: 048
     Dates: start: 201805, end: 2018
  2. ELIDEL [Suspect]
     Active Substance: PIMECROLIMUS
     Route: 061
     Dates: start: 2018, end: 201810
  3. ELIDEL [Suspect]
     Active Substance: PIMECROLIMUS
     Indication: PERIORAL DERMATITIS
     Route: 061
     Dates: start: 201805, end: 201807

REACTIONS (6)
  - Seborrhoeic dermatitis [Recovering/Resolving]
  - Lymphadenopathy [Recovered/Resolved]
  - Symptom recurrence [Recovering/Resolving]
  - Burning sensation [Recovered/Resolved]
  - Demodicidosis [Recovering/Resolving]
  - Therapy cessation [Recovered/Resolved]

NARRATIVE: CASE EVENT DATE: 201807
